FAERS Safety Report 20561448 (Version 1)
Quarter: 2022Q1

REPORT INFORMATION
  Report Type: Report from Study
  Country: BR (occurrence: BR)
  Receive Date: 20220307
  Receipt Date: 20220307
  Transmission Date: 20220424
  Serious: Yes (Other)
  Sender: FDA-Public Use
  Company Number: BR-NOVARTISPH-NVSC2021BR016318

PATIENT
  Age: 76 Year
  Sex: Female

DRUGS (2)
  1. EXELON [Suspect]
     Active Substance: RIVASTIGMINE TARTRATE
     Indication: Parkinsonism
     Dosage: UNK, ABOUT 25 SEP, 4 AND A HALF
     Route: 065
     Dates: end: 20210115
  2. EXELON [Suspect]
     Active Substance: RIVASTIGMINE TARTRATE
     Indication: Dementia

REACTIONS (13)
  - Dementia [Unknown]
  - Aggression [Recovering/Resolving]
  - Sleep disorder [Recovering/Resolving]
  - Agitation [Recovering/Resolving]
  - Condition aggravated [Recovering/Resolving]
  - Symptom recurrence [Recovering/Resolving]
  - Confusional state [Recovering/Resolving]
  - Memory impairment [Recovering/Resolving]
  - Tremor [Unknown]
  - Movement disorder [Unknown]
  - Cognitive disorder [Unknown]
  - Corticobasal degeneration [Unknown]
  - Drug ineffective [Recovering/Resolving]

NARRATIVE: CASE EVENT DATE: 20210113
